FAERS Safety Report 5320581-3 (Version None)
Quarter: 2007Q1

REPORT INFORMATION
  Report Type: 
  Country: None (occurrence: None)
  Receive Date: 20070216
  Receipt Date: 20051103
  Transmission Date: 20070707
  Serious: No
  Sender: FDA-Public Use
  Company Number: 05H-163-0303460-00

PATIENT
  Sex: Male

DRUGS (1)
  1. LIDOCAINE HCL 0.1% AND DEXTROSE 5% [Suspect]
     Indication: DRUG USE FOR UNKNOWN INDICATION
     Dosage: 500 ML, PER HOUR, INFUSION
     Route: 042
     Dates: start: 20050101, end: 20051005

REACTIONS (2)
  - ACCIDENTAL OVERDOSE [None]
  - CONVULSION [None]
